FAERS Safety Report 6359327-9 (Version None)
Quarter: 2009Q3

REPORT INFORMATION
  Report Type: 
  Country: None (occurrence: None)
  Receive Date: 20090914
  Receipt Date: 20090909
  Transmission Date: 20100115
  Serious: Yes (Hospitalization)
  Sender: FDA-Public Use
  Company Number: 1344IRINOFLUORO09

PATIENT
  Sex: Male
  Weight: 70 kg

DRUGS (3)
  1. FLUOROURACIL [Suspect]
     Indication: COLON CANCER
     Dosage: IV
     Route: 042
     Dates: start: 20090101
  2. IRINOTECAN HCL [Suspect]
     Indication: COLON CANCER
  3. BEVACIZUMAB 25 MG/ML [Suspect]
     Indication: COLON CANCER
     Dosage: 1 VIAL 400 MG/16 ML, IV
     Route: 042
     Dates: start: 20090318

REACTIONS (3)
  - PENILE ABSCESS [None]
  - PROCTALGIA [None]
  - RECTAL HAEMORRHAGE [None]
